FAERS Safety Report 20927209 (Version 1)
Quarter: 2022Q2

REPORT INFORMATION
  Report Type: Spontaneous
  Country: GB (occurrence: GB)
  Receive Date: 20220607
  Receipt Date: 20220607
  Transmission Date: 20220721
  Serious: Yes (Other)
  Sender: FDA-Public Use
  Company Number: GB-SA-2019SA034419

PATIENT
  Sex: Female

DRUGS (1)
  1. DILTIAZEM HYDROCHLORIDE [Suspect]
     Active Substance: DILTIAZEM HYDROCHLORIDE
     Indication: Cardiac disorder
     Route: 065

REACTIONS (3)
  - Suicidal ideation [Unknown]
  - Depression [Unknown]
  - Intentional product misuse [Unknown]
